FAERS Safety Report 6722120-9 (Version None)
Quarter: 2010Q2

REPORT INFORMATION
  Report Type: 
  Country: None (occurrence: None)
  Receive Date: 20100512
  Receipt Date: 20100428
  Transmission Date: 20101027
  Serious: Yes (Death, Hospitalization, Other)
  Sender: FDA-Public Use
  Company Number: US-ELI_LILLY_AND_COMPANY-US201004001452

PATIENT
  Sex: Female
  Weight: 47.619 kg

DRUGS (11)
  1. FORTEO [Suspect]
     Indication: OSTEOPOROSIS
     Dates: start: 20091030
  2. ATENOLOL [Concomitant]
     Dosage: 75 MG, EACH MORNING
  3. ATENOLOL [Concomitant]
     Dosage: 25 MG, EACH EVENING
  4. COUMADIN [Concomitant]
     Dosage: 2.5 MG, DAILY (1/D)
     Dates: start: 20100324
  5. DIGOXIN [Concomitant]
     Dosage: 0.125 MG, DAILY (1/D)
     Route: 048
  6. XANAX [Concomitant]
     Dosage: 0.25 MG, AS NEEDED
  7. AMBIEN [Concomitant]
     Dosage: UNK, AS NEEDED
     Route: 048
  8. SYNTHROID [Concomitant]
     Dosage: 50 UG, DAILY (1/D)
  9. CALTRATE [Concomitant]
     Dosage: UNK, 2/D
  10. ULTRAM [Concomitant]
     Dosage: 50 MG, OTHER
  11. REGLAN [Concomitant]
     Indication: NAUSEA
     Dosage: 10 MG, EVERY 8 HRS AS NEEDED

REACTIONS (2)
  - ATRIAL FIBRILLATION [None]
  - CARDIAC FAILURE CONGESTIVE [None]
